FAERS Safety Report 5775271-X (Version None)
Quarter: 2008Q2

REPORT INFORMATION
  Report Type: 
  Country: None (occurrence: None)
  Receive Date: 20080617
  Receipt Date: 20080605
  Transmission Date: 20081010
  Serious: Yes (Hospitalization, Disabling)
  Sender: FDA-Public Use
  Company Number: CH-ROCHE-561340

PATIENT
  Sex: Male

DRUGS (2)
  1. XELODA [Suspect]
     Dosage: DRUG:XELODA 500 MG FILMTABLETTEN, FORM:COATED TABLETS, FILM
     Route: 048
     Dates: start: 20080414, end: 20080425
  2. CHEMOTHERAPY [Concomitant]
     Dosage: DRUG:ADJUVANT CHEMOTHERAPY
     Dates: start: 20080416, end: 20080425

REACTIONS (3)
  - CARDIO-RESPIRATORY ARREST [None]
  - HYPOXIC ENCEPHALOPATHY [None]
  - VENTRICULAR FIBRILLATION [None]
